FAERS Safety Report 5071770-7 (Version None)
Quarter: 2006Q3

REPORT INFORMATION
  Report Type: 
  Country: None (occurrence: None)
  Receive Date: 20060801
  Receipt Date: 20060720
  Transmission Date: 20061208
  Serious: Yes (Other)
  Sender: FDA-Public Use
  Company Number: HQWYE662030JUL04

PATIENT
  Age: 66 Year
  Sex: Female
  Weight: 56.75 kg

DRUGS (3)
  1. PREMPRO [Suspect]
  2. PREMARIN [Suspect]
  3. PROVERA [Suspect]

REACTIONS (9)
  - BONE PAIN [None]
  - BREAST CANCER FEMALE [None]
  - BREAST CANCER RECURRENT [None]
  - BREAST FIBROSIS [None]
  - CEREBRAL ATROPHY [None]
  - CONVULSION [None]
  - DYSPNOEA [None]
  - NECROSIS [None]
  - POSTOPERATIVE WOUND COMPLICATION [None]
